FAERS Safety Report 10696963 (Version 1)
Quarter: 2015Q1

REPORT INFORMATION
  Report Type: Spontaneous
  Country: US (occurrence: None)
  Receive Date: 20150107
  Receipt Date: 20150107
  Transmission Date: 20150721
  Serious: Yes (Hospitalization, Disabling)
  Sender: FDA-Public Use
  Company Number: None

PATIENT
  Age: 55 Year
  Sex: Male
  Weight: 72.58 kg

DRUGS (1)
  1. SHOPRITE NASAL [Suspect]
     Active Substance: OXYMETAZOLINE HYDROCHLORIDE
     Indication: NASAL CONGESTION
     Dates: start: 20150105, end: 20150106

REACTIONS (2)
  - Nasal congestion [None]
  - Nasal obstruction [None]

NARRATIVE: CASE EVENT DATE: 20150106
